FAERS Safety Report 4339332-4 (Version None)
Quarter: 2004Q2

REPORT INFORMATION
  Report Type: 
  Country: None (occurrence: None)
  Receive Date: 20040412
  Receipt Date: 19961030
  Transmission Date: 20050107
  Serious: Yes (Death, Life-Threatening, Hospitalization)
  Sender: FDA-Public Use
  Company Number: WAES 96102181

PATIENT
  Age: 7 Day
  Sex: Male

DRUGS (4)
  1. INDOCIN I.V. [Suspect]
     Indication: PATENT DUCTUS ARTERIOSUS
     Dosage: IV
     Route: 042
     Dates: start: 19960912, end: 19960913
  2. AMPICILLIN [Concomitant]
  3. CEPHALORIDINE [Concomitant]
  4. DIAZEPAM [Concomitant]

REACTIONS (6)
  - ENTERITIS NECROTICANS [None]
  - GASTROINTESTINAL PERFORATION [None]
  - HYPOGLYCAEMIA NEONATAL [None]
  - NEONATAL DISORDER [None]
  - PERITONEAL DIALYSIS [None]
  - RENAL FAILURE [None]
